FAERS Safety Report 8235904-5 (Version None)
Quarter: 2012Q1

REPORT INFORMATION
  Report Type: 
  Country: None (occurrence: None)
  Receive Date: 20120326
  Receipt Date: 20120320
  Transmission Date: 20120608
  Serious: Yes (Death, Hospitalization, Other)
  Sender: FDA-Public Use
  Company Number: US-PFIZER INC-2010005914

PATIENT
  Sex: Male
  Weight: 79.365 kg

DRUGS (9)
  1. GLUCOTROL XL [Suspect]
     Indication: DIABETES MELLITUS
     Dosage: 15 MG, 1X/DAY
     Route: 048
  2. FUROSEMIDE [Concomitant]
     Dosage: 40 MG, 2X/DAY
  3. LOPRESSOR [Concomitant]
     Indication: MYOCARDIAL INFARCTION
     Dosage: UNK
  4. LOSARTAN [Concomitant]
     Dosage: UNK
  5. GLUCOTROL XL [Suspect]
     Dosage: 5 MG, 1X/DAY
     Route: 048
  6. WARFARIN [Concomitant]
     Dosage: 5 MG, 1X/DAY
  7. GLUCOTROL XL [Suspect]
     Dosage: 5 MG, 2X/DAY
     Route: 048
  8. ALLOPURINOL [Concomitant]
     Dosage: 100 MG, UNK
  9. OMEPRAZOLE [Concomitant]
     Dosage: UNK

REACTIONS (6)
  - MYOCARDIAL INFARCTION [None]
  - MALAISE [None]
  - BALANCE DISORDER [None]
  - DYSPNOEA [None]
  - CARDIAC ARREST [None]
  - CARDIAC DISORDER [None]
